FAERS Safety Report 16434955 (Version 3)
Quarter: 2019Q3

REPORT INFORMATION
  Report Type: Spontaneous
  Country: US (occurrence: US)
  Receive Date: 20190614
  Receipt Date: 20190710
  Transmission Date: 20191004
  Serious: No
  Sender: FDA-Public Use
  Company Number: US-JNJFOC-20190607344

PATIENT
  Sex: Male
  Weight: 80.81 kg

DRUGS (1)
  1. SIMPONI [Suspect]
     Active Substance: GOLIMUMAB
     Indication: COLITIS ULCERATIVE
     Route: 058
     Dates: start: 201810

REACTIONS (3)
  - Accidental exposure to product [Unknown]
  - Product dose omission [Unknown]
  - Device malfunction [Unknown]
